FAERS Safety Report 4743978-9 (Version None)
Quarter: 2005Q3

REPORT INFORMATION
  Report Type: 
  Country: None (occurrence: None)
  Receive Date: 20050812
  Receipt Date: 20050708
  Transmission Date: 20060218
  Serious: Yes (Death, Hospitalization)
  Sender: FDA-Public Use
  Company Number: HK-BRISTOL-MYERS SQUIBB COMPANY-13040910

PATIENT
  Age: 36 Year
  Sex: Female

DRUGS (5)
  1. ERBITUX [Suspect]
     Indication: VULVAL CANCER METASTATIC
     Route: 041
     Dates: start: 20050623
  2. CARBOPLATIN [Suspect]
     Indication: VULVAL CANCER METASTATIC
     Route: 041
     Dates: start: 20050630
  3. PACLITAXEL [Suspect]
     Indication: VULVAL CANCER METASTATIC
     Dates: start: 20050630
  4. NEXIUM [Concomitant]
     Dates: start: 20050617
  5. PHOSPHATE-SANDOZ [Concomitant]
     Indication: DRUG USE FOR UNKNOWN INDICATION
     Dates: start: 20050624, end: 20050627

REACTIONS (3)
  - LEUKOCYTOSIS [None]
  - PYREXIA [None]
  - THROMBOCYTOPENIA [None]
